FAERS Safety Report 20969285 (Version 1)
Quarter: 2022Q2

REPORT INFORMATION
  Report Type: Spontaneous
  Country: CN (occurrence: CN)
  Receive Date: 20220616
  Receipt Date: 20220616
  Transmission Date: 20220720
  Serious: Yes (Hospitalization)
  Sender: FDA-Public Use
  Company Number: CN-009507513-2206CHN004477

PATIENT
  Age: 61 Year
  Sex: Male
  Weight: 67 kg

DRUGS (2)
  1. KEYTRUDA [Suspect]
     Active Substance: PEMBROLIZUMAB
     Indication: Malignant melanoma
     Dosage: 200 MG, ONCE, IV DRIP
     Route: 041
     Dates: start: 20220317, end: 20220317
  2. APATINIB [Suspect]
     Active Substance: APATINIB
     Indication: Targeted cancer therapy
     Dosage: 0.25 G, ONCE DAILY, ORAL
     Route: 048
     Dates: start: 20220316, end: 20220330

REACTIONS (1)
  - Platelet count decreased [Recovering/Resolving]

NARRATIVE: CASE EVENT DATE: 20220322
